FAERS Safety Report 7361925-0 (Version None)
Quarter: 2011Q1

REPORT INFORMATION
  Report Type: 
  Country: None (occurrence: None)
  Receive Date: 20110318
  Receipt Date: 20110310
  Transmission Date: 20110831
  Serious: No
  Sender: FDA-Public Use
  Company Number: DE-ASTRAZENECA-2011SE13621

PATIENT
  Sex: Male
  Weight: 54 kg

DRUGS (1)
  1. SEROQUEL XR [Suspect]
     Indication: SCHIZOPHRENIA
     Dosage: 50-400 MG DAILY
     Route: 048
     Dates: start: 20101209, end: 20110218

REACTIONS (1)
  - LEUKOPENIA [None]
